FAERS Safety Report 5615765-0 (Version None)
Quarter: 2008Q1

REPORT INFORMATION
  Report Type: 
  Country: None (occurrence: None)
  Receive Date: 20080206
  Receipt Date: 20080125
  Transmission Date: 20080703
  Serious: Yes (Hospitalization)
  Sender: FDA-Public Use
  Company Number: FR-ROCHE-543533

PATIENT
  Age: 65 Year
  Sex: Female

DRUGS (9)
  1. CLONAZEPAM [Suspect]
     Indication: DRUG USE FOR UNKNOWN INDICATION
     Route: 048
     Dates: start: 20071108, end: 20071206
  2. VELCADE [Suspect]
     Route: 042
     Dates: start: 20071023, end: 20071106
  3. VALACYCLOVIR [Concomitant]
     Dates: start: 20071023
  4. MOPRAL [Concomitant]
     Dates: start: 20071023
  5. LASILIX [Concomitant]
  6. LOXEN [Concomitant]
  7. LAROXYL [Concomitant]
  8. DEXAMETHASONE TAB [Concomitant]
     Dates: start: 20071023
  9. IXPRIM [Concomitant]
     Dates: start: 20071023

REACTIONS (1)
  - VISUAL ACUITY REDUCED [None]
